FAERS Safety Report 10592339 (Version 2)
Quarter: 2014Q4

REPORT INFORMATION
  Report Type: Spontaneous
  Country: US (occurrence: US)
  Receive Date: 20141119
  Receipt Date: 20141119
  Transmission Date: 20150529
  Serious: No
  Sender: FDA-Public Use
  Company Number: US-ELI_LILLY_AND_COMPANY-US200703005397

PATIENT
  Age: 59 Year
  Sex: Female

DRUGS (3)
  1. DEPAKOTE [Concomitant]
     Active Substance: DIVALPROEX SODIUM
  2. ZYPREXA [Suspect]
     Active Substance: OLANZAPINE
     Indication: PRODUCT USED FOR UNKNOWN INDICATION
  3. ABILIFY [Suspect]
     Active Substance: ARIPIPRAZOLE
     Indication: BIPOLAR I DISORDER
     Dosage: 15 MG, QD
     Dates: end: 2014

REACTIONS (5)
  - Liver disorder [Recovered/Resolved]
  - Hypersomnia [Recovered/Resolved]
  - Type 2 diabetes mellitus [Recovering/Resolving]
  - Amnesia [Not Recovered/Not Resolved]
  - Weight decreased [Unknown]
